FAERS Safety Report 6308065-7 (Version None)
Quarter: 2009Q3

REPORT INFORMATION
  Report Type: 
  Country: None (occurrence: None)
  Receive Date: 20090813
  Receipt Date: 20090810
  Transmission Date: 20100115
  Serious: Yes (Hospitalization)
  Sender: FDA-Public Use
  Company Number: B0587751B

PATIENT
  Sex: Male
  Weight: 68 kg

DRUGS (3)
  1. LAPATINIB [Suspect]
     Indication: GASTRIC CANCER
     Dosage: 1250MG PER DAY
     Route: 048
     Dates: start: 20090728
  2. OXALIPLATIN [Suspect]
     Indication: GASTRIC CANCER
     Dosage: 250MG CYCLIC
     Route: 042
     Dates: start: 20090728
  3. CAPECITABINE [Suspect]
     Indication: GASTRIC CANCER
     Dosage: 1650MG TWICE PER DAY
     Route: 048
     Dates: start: 20090728

REACTIONS (1)
  - ABDOMINAL PAIN UPPER [None]
